FAERS Safety Report 14503033 (Version 4)
Quarter: 2018Q1

REPORT INFORMATION
  Report Type: Spontaneous
  Country: US (occurrence: US)
  Receive Date: 20180208
  Receipt Date: 20180322
  Transmission Date: 20180509
  Serious: No
  Sender: FDA-Public Use
  Company Number: US-PFIZER INC-2018047548

PATIENT
  Age: 8 Year
  Sex: Male
  Weight: 32 kg

DRUGS (3)
  1. QUILLIVANT XR [Suspect]
     Active Substance: METHYLPHENIDATE HYDROCHLORIDE
     Indication: ATTENTION DEFICIT/HYPERACTIVITY DISORDER
     Dosage: 1X/DAY [25MG/5CC]/[5CC (1 TEASPOON) LIQUID]
     Route: 048
     Dates: start: 201708
  2. QUILLIVANT XR [Suspect]
     Active Substance: METHYLPHENIDATE HYDROCHLORIDE
     Indication: IRLEN SYNDROME
  3. FLINTSTONES VITAMINS [Concomitant]
     Dosage: UNK

REACTIONS (6)
  - Educational problem [Not Recovered/Not Resolved]
  - Poor quality drug administered [Unknown]
  - Drug ineffective [Unknown]
  - Product quality issue [Unknown]
  - Disturbance in attention [Not Recovered/Not Resolved]
  - Weight increased [Unknown]

NARRATIVE: CASE EVENT DATE: 201801
